FAERS Safety Report 23846110 (Version 1)
Quarter: 2024Q2

REPORT INFORMATION
  Report Type: Spontaneous
  Country: US (occurrence: US)
  Receive Date: 20240512
  Receipt Date: 20240512
  Transmission Date: 20240716
  Serious: Yes (Hospitalization)
  Sender: FDA-Public Use
  Company Number: US-SA-SAC20240510000004

PATIENT
  Age: 39 Year
  Sex: Male

DRUGS (4)
  1. ALPROLIX [Suspect]
     Active Substance: EFTRENONACOG ALFA
     Indication: Factor IX deficiency
     Dosage: UNK
     Route: 041
     Dates: start: 202404
  2. ALPROLIX [Suspect]
     Active Substance: EFTRENONACOG ALFA
     Indication: Factor IX deficiency
     Dosage: UNK
     Route: 041
     Dates: start: 202404
  3. ALPROLIX [Suspect]
     Active Substance: EFTRENONACOG ALFA
     Dosage: 6000 IU (INFUSE 6000 UNITS (5400-6600) SLOW IV PUSH ONCE FOR 1 DOSE THE MORNING OF ORAL SURGERY)
     Route: 041
     Dates: start: 20240425, end: 20240425
  4. ALPROLIX [Suspect]
     Active Substance: EFTRENONACOG ALFA
     Dosage: 6000 IU (INFUSE 6000 UNITS (5400-6600) SLOW IV PUSH ONCE FOR 1 DOSE THE MORNING OF ORAL SURGERY)
     Route: 041
     Dates: start: 20240425, end: 20240425

REACTIONS (2)
  - Haemorrhage [Unknown]
  - Oral surgery [Unknown]

NARRATIVE: CASE EVENT DATE: 20240425
